FAERS Safety Report 8231536-3 (Version None)
Quarter: 2012Q1

REPORT INFORMATION
  Report Type: 
  Country: None (occurrence: None)
  Receive Date: 20120323
  Receipt Date: 20120319
  Transmission Date: 20120608
  Serious: Yes (Hospitalization, Other)
  Sender: FDA-Public Use
  Company Number: PHHY2012AR024480

PATIENT
  Sex: Male

DRUGS (1)
  1. DIOVAN [Suspect]
     Indication: HYPERTENSION
     Dosage: UNK
     Dates: start: 20110801, end: 20111001

REACTIONS (5)
  - HYPOGLYCAEMIA [None]
  - EYE MOVEMENT DISORDER [None]
  - INTESTINAL PERFORATION [None]
  - FEELING COLD [None]
  - CHEST PAIN [None]
